FAERS Safety Report 5116676-X (Version None)
Quarter: 2006Q3

REPORT INFORMATION
  Report Type: 
  Country: None (occurrence: None)
  Receive Date: 20060928
  Receipt Date: 20060925
  Transmission Date: 20061208
  Serious: Yes (Other)
  Sender: FDA-Public Use
  Company Number: 2006-UK-03692UK

PATIENT
  Sex: Female

DRUGS (3)
  1. COMBIVIR [Suspect]
  2. NEVIRAPINE [Suspect]
     Route: 065
  3. VIRAMUNE [Suspect]
     Route: 065

REACTIONS (4)
  - ASCITES [None]
  - DRUG EXPOSURE DURING PREGNANCY [None]
  - PERICARDIAL EFFUSION [None]
  - ULTRASOUND ANTENATAL SCREEN ABNORMAL [None]
